FAERS Safety Report 4984234-3 (Version None)
Quarter: 2006Q2

REPORT INFORMATION
  Report Type: 
  Country: None (occurrence: None)
  Receive Date: 20060420
  Receipt Date: 20060412
  Transmission Date: 20061013
  Serious: Yes (Hospitalization)
  Sender: FDA-Public Use
  Company Number: E044-318-3889

PATIENT
  Age: 79 Year
  Sex: Male
  Weight: 67.2 kg

DRUGS (13)
  1. DONEPEZIL HCL [Suspect]
     Indication: DEMENTIA
     Dosage: 5 MG, 1 IN 1 D; ORAL
     Route: 048
     Dates: start: 20050531
  2. DONEPEZIL HCL [Suspect]
     Indication: PARKINSON'S DISEASE
     Dosage: 5 MG, 1 IN 1 D; ORAL
     Route: 048
     Dates: start: 20050531
  3. DONEPEZIL HCL [Suspect]
     Indication: DEMENTIA
     Dosage: DOUBLEBLIND, 1 IN 1 D; ORAL
     Route: 048
     Dates: start: 20041215, end: 20050530
  4. DONEPEZIL HCL [Suspect]
     Indication: PARKINSON'S DISEASE
     Dosage: DOUBLEBLIND, 1 IN 1 D; ORAL
     Route: 048
     Dates: start: 20041215, end: 20050530
  5. CHLORHYDRATE VENLAFAXINE (CHLORAL HYDRATE) [Concomitant]
  6. LEVOTHYROXINE SODIUM [Concomitant]
  7. BISULFATE CLOPIDOGREL (CLOPIDOGREL SULFATE) [Concomitant]
  8. ISOSORBIDE MONONITRATE [Concomitant]
  9. PINDOLOL [Concomitant]
  10. LISINOPRIL [Concomitant]
  11. SIMVASTATIN [Concomitant]
  12. ASPIRIN [Concomitant]
  13. LEVODOPA [Concomitant]

REACTIONS (6)
  - AGITATION [None]
  - ANXIETY [None]
  - DELIRIUM [None]
  - DISORIENTATION [None]
  - FALL [None]
  - HALLUCINATION, VISUAL [None]
